FAERS Safety Report 7939069-6 (Version None)
Quarter: 2011Q4

REPORT INFORMATION
  Report Type: 
  Country: None (occurrence: None)
  Receive Date: 20111124
  Receipt Date: 20111121
  Transmission Date: 20120403
  Serious: Yes (Other)
  Sender: FDA-Public Use
  Company Number: US-PFIZER INC-2011284771

PATIENT
  Sex: Female
  Weight: 61.2 kg

DRUGS (8)
  1. SIMVASTATIN [Concomitant]
     Indication: BLOOD CHOLESTEROL INCREASED
     Dosage: UNK
  2. PREDNISONE [Concomitant]
     Indication: CHRONIC OBSTRUCTIVE PULMONARY DISEASE
     Dosage: UNK
  3. HYDROCORTISONE [Concomitant]
     Indication: HYPERTENSION
     Dosage: UNK
  4. IBUPROFEN [Concomitant]
     Indication: DYSPNOEA
     Dosage: UNK
  5. ALBUTEROL [Concomitant]
     Indication: DYSPNOEA
     Dosage: UNK
  6. SYMBICORT [Concomitant]
     Indication: DYSPNOEA
     Dosage: UNK
  7. PREMPRO [Suspect]
     Indication: OFF LABEL USE
     Dosage: 1 DF, 1X/DAY
     Route: 048
     Dates: start: 20111113, end: 20111118
  8. PREMPRO [Suspect]
     Indication: HYPERPARATHYROIDISM PRIMARY

REACTIONS (11)
  - OEDEMA PERIPHERAL [None]
  - DYSPNOEA [None]
  - URTICARIA [None]
  - OCULAR HYPERAEMIA [None]
  - WEIGHT INCREASED [None]
  - JOINT SWELLING [None]
  - HEADACHE [None]
  - RASH [None]
  - EYE SWELLING [None]
  - DIZZINESS [None]
  - IRRITABILITY [None]
